FAERS Safety Report 23620361 (Version 2)
Quarter: 2024Q1

REPORT INFORMATION
  Report Type: Report from Study
  Country: CN (occurrence: CN)
  Receive Date: 20240312
  Receipt Date: 20240325
  Transmission Date: 20240410
  Serious: Yes (Life-Threatening, Hospitalization)
  Sender: FDA-Public Use
  Company Number: CN-JNJFOC-20240310995

PATIENT
  Age: 60 Year
  Sex: Female
  Weight: 54.2 kg

DRUGS (14)
  1. DARATUMUMAB [Suspect]
     Active Substance: DARATUMUMAB
     Indication: Plasma cell myeloma
     Route: 058
     Dates: start: 20230707, end: 20230810
  2. ELRANATAMAB [Suspect]
     Active Substance: ELRANATAMAB
     Indication: Plasma cell myeloma
     Route: 058
     Dates: start: 20230615, end: 20230810
  3. ELRANATAMAB [Suspect]
     Active Substance: ELRANATAMAB
     Route: 058
     Dates: start: 20230619, end: 20230619
  4. ELRANATAMAB [Suspect]
     Active Substance: ELRANATAMAB
     Route: 058
     Dates: start: 20230625, end: 20231122
  5. ELRANATAMAB [Suspect]
     Active Substance: ELRANATAMAB
     Route: 058
     Dates: start: 20231129, end: 20231213
  6. MEROPENEM [Concomitant]
     Active Substance: MEROPENEM
     Route: 065
     Dates: start: 20240131, end: 20240131
  7. MEROPENEM [Concomitant]
     Active Substance: MEROPENEM
     Route: 065
     Dates: start: 20240201, end: 20240206
  8. GANCICLOVIR [Concomitant]
     Active Substance: GANCICLOVIR
     Dates: start: 20240131, end: 20240212
  9. NYSTATIN [Concomitant]
     Active Substance: NYSTATIN
     Dates: start: 20240202, end: 20240219
  10. VORICONAZOLE [Concomitant]
     Active Substance: VORICONAZOLE
     Dates: start: 20240202, end: 20240202
  11. VORICONAZOLE [Concomitant]
     Active Substance: VORICONAZOLE
     Dates: start: 20240203, end: 20240220
  12. VORICONAZOLE [Concomitant]
     Active Substance: VORICONAZOLE
     Dates: start: 20240203, end: 20240220
  13. ACETYLCYSTEINE [Concomitant]
     Active Substance: ACETYLCYSTEINE
     Dates: start: 20240204, end: 20240214
  14. SODIUM CHLORIDE [Concomitant]
     Active Substance: SODIUM CHLORIDE
     Dates: start: 20240202, end: 20240219

REACTIONS (2)
  - Pneumonia pseudomonal [Not Recovered/Not Resolved]
  - Urinary tract infection bacterial [Not Recovered/Not Resolved]

NARRATIVE: CASE EVENT DATE: 20240220
